FAERS Safety Report 9401253 (Version 1)
Quarter: 2013Q3

REPORT INFORMATION
  Report Type: Spontaneous
  Country: US (occurrence: US)
  Receive Date: 20130715
  Receipt Date: 20130715
  Transmission Date: 20140515
  Serious: Yes (Other)
  Sender: FDA-Public Use
  Company Number: US-PFIZER INC-US-WYE-H17977910

PATIENT
  Age: 62 Year
  Sex: Female
  Weight: 96.2 kg

DRUGS (9)
  1. EFFEXOR XR [Suspect]
     Indication: DEPRESSION
     Dosage: 37.5 MG, 1X/DAY
     Route: 065
     Dates: start: 2004
  2. EFFEXOR XR [Suspect]
     Indication: DISTURBANCE IN ATTENTION
     Dosage: 75 MG, 1X/DAY
     Route: 065
     Dates: end: 2005
  3. EFFEXOR XR [Suspect]
     Dosage: 112.5 MG, 1X/DAY
     Route: 065
     Dates: start: 2005, end: 201007
  4. EFFEXOR XR [Suspect]
     Dosage: 37.5 MG, 1X/DAY
     Route: 048
     Dates: end: 2009
  5. EFFEXOR XR [Suspect]
     Dosage: 112.5 MG, 1X/DAY
     Route: 048
     Dates: start: 2009, end: 201007
  6. EFFEXOR XR [Suspect]
     Dosage: 150 MG, 1X/DAY (THERE WERE PLANNED INCREASED TO 150 MG DAILY)
     Route: 048
     Dates: start: 201007, end: 201007
  7. EFFEXOR XR [Suspect]
     Dosage: 75 MG, 1X/DAY
     Route: 048
     Dates: start: 201007, end: 201007
  8. EFFEXOR XR [Suspect]
     Dosage: 37.5 MG, 2X/DAY
     Route: 048
     Dates: start: 201007
  9. EFFEXOR XR [Suspect]
     Dosage: 75 MG, 1X/DAY
     Route: 065
     Dates: start: 201007

REACTIONS (9)
  - Cardiac disorder [Unknown]
  - Ejection fraction decreased [Unknown]
  - Viral infection [Unknown]
  - Drug ineffective [Not Recovered/Not Resolved]
  - Somnolence [Recovered/Resolved]
  - Apathy [Unknown]
  - Crying [Unknown]
  - Electrocardiogram abnormal [Unknown]
  - Body height decreased [Not Recovered/Not Resolved]
